FAERS Safety Report 24759254 (Version 1)
Quarter: 2024Q4

REPORT INFORMATION
  Report Type: Spontaneous
  Country: US (occurrence: US)
  Receive Date: 20241220
  Receipt Date: 20241220
  Transmission Date: 20250115
  Serious: Yes (Other)
  Sender: RANBAXY
  Company Number: US-SUN PHARMACEUTICAL INDUSTRIES LTD-2024R1-485620

PATIENT
  Age: 3 Decade
  Sex: Female

DRUGS (9)
  1. CISPLATIN [Suspect]
     Active Substance: CISPLATIN
     Indication: Malignant mast cell neoplasm
     Dosage: UNK
     Route: 065
  2. GEMCITABINE [Suspect]
     Active Substance: GEMCITABINE
     Indication: Malignant mast cell neoplasm
     Dosage: UNK
     Route: 065
  3. CYCLOPHOSPHAMIDE [Suspect]
     Active Substance: CYCLOPHOSPHAMIDE
     Indication: Malignant mast cell neoplasm
     Dosage: UNK
     Route: 065
  4. EPIRUBICIN [Suspect]
     Active Substance: EPIRUBICIN
     Indication: Malignant mast cell neoplasm
     Dosage: UNK
     Route: 065
  5. ETOPOSIDE [Suspect]
     Active Substance: ETOPOSIDE
     Indication: Malignant mast cell neoplasm
     Dosage: UNK
     Route: 065
  6. DIETARY SUPPLEMENT\RESVERATROL [Suspect]
     Active Substance: DIETARY SUPPLEMENT\RESVERATROL
     Indication: Malignant mast cell neoplasm
     Dosage: UNK
     Route: 065
  7. MITOMYCIN [Suspect]
     Active Substance: MITOMYCIN
     Indication: Malignant mast cell neoplasm
     Dosage: UNK
     Route: 065
  8. TOPOTECAN [Suspect]
     Active Substance: TOPOTECAN HYDROCHLORIDE
     Indication: Malignant mast cell neoplasm
     Dosage: UNK
     Route: 065
  9. IFOSFAMIDE [Suspect]
     Active Substance: IFOSFAMIDE
     Indication: Malignant mast cell neoplasm
     Dosage: UNK
     Route: 065

REACTIONS (2)
  - Therapy non-responder [Unknown]
  - Disease progression [Unknown]
